FAERS Safety Report 23503598 (Version 1)
Quarter: 2024Q1

REPORT INFORMATION
  Report Type: Spontaneous
  Country: GB (occurrence: GB)
  Receive Date: 20240208
  Receipt Date: 20240208
  Transmission Date: 20240410
  Serious: Yes (Other)
  Sender: FDA-Public Use
  Company Number: None

PATIENT
  Age: 48 Year
  Sex: Male
  Weight: 80 kg

DRUGS (6)
  1. GABAPENTIN [Suspect]
     Active Substance: GABAPENTIN
     Indication: Product used for unknown indication
     Dosage: 100 MILLIGRAM (CAPSULE)
     Route: 065
  2. AMITRIPTYLINE HYDROCHLORIDE [Concomitant]
     Active Substance: AMITRIPTYLINE HYDROCHLORIDE
     Indication: Product used for unknown indication
     Dosage: UNK (TAKE 1 EACH EVENING TWO HOURS BEFORE BEDTIME)
     Route: 065
     Dates: start: 20231218, end: 20240115
  3. COCODAMOL [Concomitant]
     Active Substance: ACETAMINOPHEN\CODEINE PHOSPHATE
     Indication: Product used for unknown indication
     Dosage: UNK, PRN (TAKE 1 OR 2 UP TO 4 TIMES/DAY WHEN REQUIRED)
     Route: 065
     Dates: start: 20231215, end: 20231227
  4. DIAZEPAM [Concomitant]
     Active Substance: DIAZEPAM
     Indication: Product used for unknown indication
     Dosage: UNK (ONE TO BE TAKEN UP TO THREE TIMES A DAY FOR UP ...)
     Route: 065
     Dates: start: 20231121, end: 20231126
  5. NAPROXEN [Concomitant]
     Active Substance: NAPROXEN
     Indication: Product used for unknown indication
     Dosage: UNK, 2 DF QD (TAKE ONE TWICE DAILY AFTER MEALS)
     Route: 065
     Dates: start: 20231218, end: 20240115
  6. OMEPRAZOLE [Concomitant]
     Active Substance: OMEPRAZOLE
     Indication: Product used for unknown indication
     Dosage: UNK, 1 DF, QD (TAKE ONE DAILY WHILST YOU ARE ON NAPROXEN)
     Route: 065
     Dates: start: 20180108

REACTIONS (3)
  - Hypertension [Recovered/Resolved]
  - Hyperhidrosis [Recovered/Resolved]
  - Vomiting [Recovered/Resolved]
